FAERS Safety Report 25374452 (Version 1)
Quarter: 2025Q2

REPORT INFORMATION
  Report Type: Spontaneous
  Country: US (occurrence: None)
  Receive Date: 20250528
  Receipt Date: 20250528
  Transmission Date: 20250716
  Serious: Yes (Hospitalization, Other)
  Sender: FDA-CTU
  Company Number: None

PATIENT
  Age: 56 Year
  Sex: Female
  Weight: 108 kg

DRUGS (1)
  1. MOUNJARO [Suspect]
     Active Substance: TIRZEPATIDE
     Indication: Diabetes mellitus
     Dates: start: 20240321, end: 20250421

REACTIONS (4)
  - Large intestine perforation [None]
  - Intestinal obstruction [None]
  - Splenic rupture [None]
  - Pleural effusion [None]

NARRATIVE: CASE EVENT DATE: 20250411
